FAERS Safety Report 12345841 (Version 1)
Quarter: 2016Q2

REPORT INFORMATION
  Report Type: Spontaneous
  Country: US (occurrence: US)
  Receive Date: 20160509
  Receipt Date: 20160509
  Transmission Date: 20160815
  Serious: No
  Sender: FDA-Public Use
  Company Number: US-009507513-1604USA017039

PATIENT
  Sex: Male
  Weight: 86.17 kg

DRUGS (2)
  1. TOUJEO [Suspect]
     Active Substance: INSULIN GLARGINE
     Dosage: UNK, AS NEEDED
  2. JANUMET [Suspect]
     Active Substance: METFORMIN HYDROCHLORIDE\SITAGLIPTIN PHOSPHATE
     Dosage: UNK
     Route: 048

REACTIONS (7)
  - Arthritis [Unknown]
  - Nocturia [Recovering/Resolving]
  - Neuropathy peripheral [Unknown]
  - Blood cholesterol abnormal [Unknown]
  - Renal disorder [Unknown]
  - Weight decreased [Unknown]
  - Blood glucose decreased [Unknown]
